FAERS Safety Report 6759429-9 (Version None)
Quarter: 2010Q2

REPORT INFORMATION
  Report Type: 
  Country: None (occurrence: None)
  Receive Date: 20100602
  Receipt Date: 20100518
  Transmission Date: 20101027
  Serious: Yes (Hospitalization, Other)
  Sender: FDA-Public Use
  Company Number: 2010002105

PATIENT
  Age: 69 Year
  Sex: Male

DRUGS (13)
  1. ERLOTINIB (ERLOTINIB) (TABLET) (ERLOTINIB) [Suspect]
     Indication: GLIOBLASTOMA
     Dosage: (150 MG,QD) ORAL
     Route: 048
     Dates: start: 20100511
  2. TEMOZOLOMIDE [Suspect]
     Indication: GLIOBLASTOMA
     Dosage: (75 MG/M2)
     Dates: start: 20100510
  3. ACETAMINOPHEN [Concomitant]
  4. DECADRON [Concomitant]
  5. CLONIDINE HCL [Concomitant]
  6. KEPPRA [Concomitant]
  7. ATORVASTATIN CALCIUM [Concomitant]
  8. PRILOSEC (OMEPRAZOLE) [Concomitant]
  9. TEMAZEPAM [Concomitant]
  10. LISINOPRIL [Concomitant]
  11. ALLOPURINOL [Concomitant]
  12. COLACE (DOCUSATE SODIUM) [Concomitant]
  13. THIAMINE (THIAMINE) [Concomitant]

REACTIONS (5)
  - CONFUSIONAL STATE [None]
  - CONVULSION [None]
  - DEHYDRATION [None]
  - HYDROCEPHALUS [None]
  - VOMITING [None]
